FAERS Safety Report 20869828 (Version 1)
Quarter: 2022Q2

REPORT INFORMATION
  Report Type: Spontaneous
  Country: PL (occurrence: PL)
  Receive Date: 20220525
  Receipt Date: 20220525
  Transmission Date: 20220721
  Serious: Yes (Other)
  Sender: FDA-Public Use
  Company Number: PL-SUN PHARMACEUTICAL INDUSTRIES LTD-2022R1-337670

PATIENT
  Sex: Male
  Weight: 2.04 kg

DRUGS (19)
  1. ASPIRIN [Suspect]
     Active Substance: ASPIRIN
     Indication: Prophylaxis
     Dosage: 150 MILLIGRAM, DAILY
     Route: 064
  2. LEVOTHYROXINE [Suspect]
     Active Substance: LEVOTHYROXINE
     Indication: Hypothyroidism
     Dosage: 50 MICROGRAM, DAILY
     Route: 064
  3. PROGESTERONE [Suspect]
     Active Substance: PROGESTERONE
     Indication: Hormone replacement therapy
     Dosage: UNK (200 MG + 200 MG + 200 MG)
     Route: 064
  4. PROGESTERONE [Suspect]
     Active Substance: PROGESTERONE
     Dosage: UNK (200 MG + 0 + 200 MG)
     Route: 064
  5. PROGESTERONE [Suspect]
     Active Substance: PROGESTERONE
     Dosage: UNK (0 + 0 + 200 MG)
     Route: 064
  6. PREDNISONE [Suspect]
     Active Substance: PREDNISONE
     Indication: Product used for unknown indication
     Dosage: 5 MILLIGRAM, DAILY
     Route: 064
  7. PREDNISONE [Suspect]
     Active Substance: PREDNISONE
     Dosage: 2.5 MILLIGRAM, DAILY
     Route: 064
  8. OMEGA-3 FATTY ACIDS [Suspect]
     Active Substance: OMEGA-3 FATTY ACIDS
     Indication: Product used for unknown indication
     Dosage: UNK (300 MG-1 TABLET) 3 X 2 TABLETS)
     Route: 064
  9. ESTRADIOL HEMIHYDRATE [Suspect]
     Active Substance: ESTRADIOL HEMIHYDRATE
     Indication: Hormone replacement therapy
     Dosage: UNK (2 MG + 2 MG + 2 MG)
     Route: 064
  10. ESTRADIOL HEMIHYDRATE [Suspect]
     Active Substance: ESTRADIOL HEMIHYDRATE
     Dosage: UNK (2 MG + 0 + 2 MG)
     Route: 064
  11. ESTRADIOL HEMIHYDRATE [Suspect]
     Active Substance: ESTRADIOL HEMIHYDRATE
     Dosage: UNK (1 MG + 0 + 1 MG)
     Route: 064
  12. ESTRADIOL HEMIHYDRATE [Suspect]
     Active Substance: ESTRADIOL HEMIHYDRATE
     Dosage: UNK (1.5 MG)
     Route: 064
  13. MONUROL [Suspect]
     Active Substance: FOSFOMYCIN TROMETHAMINE
     Indication: Product used for unknown indication
     Dosage: UNK (3 G)
     Route: 064
  14. NORGESTREL [Suspect]
     Active Substance: NORGESTREL
     Indication: Hormone replacement therapy
     Dosage: UNK (0.5 MG)
     Route: 064
  15. NORGESTREL [Suspect]
     Active Substance: NORGESTREL
     Dosage: UNK (2.5 MG)
     Route: 064
  16. NATAMYCIN [Suspect]
     Active Substance: NATAMYCIN
     Indication: Product used for unknown indication
     Dosage: UNK (100 MG, 1 X 1 TABLET)
     Route: 064
  17. PROGESTERONE [Suspect]
     Active Substance: PROGESTERONE
     Indication: Hormone replacement therapy
     Dosage: UNK (1 X 25 MG I.M./S.C. FOR EVERY THIRD DAY)
     Route: 064
  18. PROGESTERONE [Suspect]
     Active Substance: PROGESTERONE
     Dosage: UNK (1 X 25 MG I.M./S.C. FOR EVERY FIFTH DAY)
     Route: 064
  19. PROGESTERONE [Suspect]
     Active Substance: PROGESTERONE
     Dosage: UNK (1 X 25 MG I.M./S.C. FOR ONE IN WEEK)
     Route: 064

REACTIONS (2)
  - Foetal exposure during pregnancy [Unknown]
  - Premature baby [Unknown]
